FAERS Safety Report 8821801 (Version 1)
Quarter: 2012Q4

REPORT INFORMATION
  Report Type: 
  Country: US (occurrence: US)
  Receive Date: 20121002
  Receipt Date: 20121002
  Transmission Date: 20130627
  Serious: No
  Sender: FDA-Public Use
  Company Number: US-VERTEX PHARMACEUTICAL INC.-2012-020716

PATIENT
  Age: 48 Year
  Sex: Female
  Weight: 85 kg

DRUGS (3)
  1. INCIVEK [Suspect]
     Indication: HEPATITIS C
     Dosage: 750 mg, tid
     Route: 048
     Dates: start: 20120826
  2. COPEGUS [Concomitant]
     Indication: HEPATITIS C
     Dosage: 5 DF, qd
     Dates: start: 20120826
  3. PEGINTERFERON ALFA [Concomitant]
     Indication: HEPATITIS C
     Dosage: UNK
     Dates: start: 20120826

REACTIONS (2)
  - Headache [Not Recovered/Not Resolved]
  - Diarrhoea [Not Recovered/Not Resolved]
